FAERS Safety Report 10189367 (Version 1)
Quarter: 2014Q2

REPORT INFORMATION
  Report Type: Spontaneous
  Country: US (occurrence: US)
  Receive Date: 20140522
  Receipt Date: 20140522
  Transmission Date: 20141212
  Serious: No
  Sender: FDA-Public Use
  Company Number: US-BAXTER-2013BAX025736

PATIENT
  Sex: 0

DRUGS (4)
  1. GAMMAGARD LIQUID [Suspect]
     Indication: PRODUCT USED FOR UNKNOWN INDICATION
     Route: 065
  2. GAMMAGARD LIQUID [Suspect]
     Route: 065
     Dates: start: 201205
  3. GAMMAGARD LIQUID [Suspect]
     Route: 065
     Dates: start: 201203
  4. GAMMAGARD LIQUID [Suspect]
     Route: 065
     Dates: start: 201201

REACTIONS (4)
  - Headache [Unknown]
  - Malaise [Unknown]
  - Pain [Unknown]
  - Hypokinesia [Unknown]
